FAERS Safety Report 15231468 (Version 1)
Quarter: 2018Q3

REPORT INFORMATION
  Report Type: Spontaneous
  Country: GR (occurrence: GR)
  Receive Date: 20180802
  Receipt Date: 20180802
  Transmission Date: 20181010
  Serious: Yes (Other)
  Sender: FDA-Public Use
  Company Number: PHHY2018GR057784

PATIENT
  Age: 68 Year
  Sex: Female

DRUGS (2)
  1. ZYKADIA [Suspect]
     Active Substance: CERITINIB
     Indication: NON-SMALL CELL LUNG CANCER
     Dosage: 200 MG, QD
     Route: 065
  2. ZYKADIA [Suspect]
     Active Substance: CERITINIB
     Dosage: 450 MG, QD
     Route: 065

REACTIONS (6)
  - Gastrointestinal toxicity [Unknown]
  - Malignant neoplasm progression [Unknown]
  - Gastritis [Unknown]
  - Osteoporotic fracture [Unknown]
  - Non-small cell lung cancer [Unknown]
  - Therapeutic response decreased [Unknown]
